FAERS Safety Report 23654826 (Version 1)
Quarter: 2024Q1

REPORT INFORMATION
  Report Type: Spontaneous
  Country: US (occurrence: US)
  Receive Date: 20240320
  Receipt Date: 20240320
  Transmission Date: 20240409
  Serious: No
  Sender: FDA-Public Use
  Company Number: US-MYLANLABS-2024M1022536

PATIENT
  Age: 74 Year
  Sex: Female
  Weight: 92.08 kg

DRUGS (2)
  1. TYRVAYA [Suspect]
     Active Substance: VARENICLINE TARTRATE
     Indication: Dry eye
     Dosage: UNK, QD
     Route: 065
     Dates: start: 20231114
  2. SYSTANE (HYPROMELLOSE 2910 (4000 MPA.S)) [Concomitant]
     Active Substance: HYPROMELLOSE 2910 (4000 MPA.S)
     Dosage: UNK (USE AS NEEDED)
     Route: 065

REACTIONS (2)
  - Sneezing [Unknown]
  - Off label use [Unknown]

NARRATIVE: CASE EVENT DATE: 20231114
